FAERS Safety Report 10004662 (Version 1)
Quarter: 2014Q1

REPORT INFORMATION
  Report Type: Spontaneous
  Country: FR (occurrence: FR)
  Receive Date: 20140312
  Receipt Date: 20140312
  Transmission Date: 20141002
  Serious: Yes (Other)
  Sender: FDA-Public Use
  Company Number: PHHY2014FR029109

PATIENT
  Sex: 0

DRUGS (5)
  1. MYCOPHENOLIC ACID [Suspect]
     Indication: IMMUNOSUPPRESSION
     Dosage: UNK
  2. MYCOPHENOLIC ACID [Suspect]
     Indication: LIVER TRANSPLANT
  3. TACROLIMUS [Suspect]
     Indication: IMMUNOSUPPRESSION
  4. TACROLIMUS [Suspect]
     Indication: LIVER TRANSPLANT
  5. CORTICOSTEROIDS [Suspect]

REACTIONS (7)
  - Hepatitis E [Recovered/Resolved]
  - Necrosis [Unknown]
  - Cholangitis [Unknown]
  - Transplant rejection [Unknown]
  - Hepatic enzyme increased [Recovered/Resolved]
  - Gallbladder disorder [Unknown]
  - Endothelin abnormal [Unknown]
